FAERS Safety Report 24576129 (Version 1)
Quarter: 2024Q4

REPORT INFORMATION
  Report Type: Spontaneous
  Country: US (occurrence: None)
  Receive Date: 20241104
  Receipt Date: 20241104
  Transmission Date: 20250115
  Serious: Yes (Death)
  Sender: Public
  Company Number: None

PATIENT
  Sex: Female

DRUGS (6)
  1. AMBRISENTAN [Suspect]
     Active Substance: AMBRISENTAN
     Indication: Pulmonary hypertension
     Dosage: FREQ: TAKE 1 TABLET BY MOUTH DAILY.
     Route: 048
     Dates: start: 20200813
  2. AMBRISENTAN [Concomitant]
     Active Substance: AMBRISENTAN
  3. IRON [Concomitant]
     Active Substance: IRON
  4. LEFLUNOMIDE [Concomitant]
     Active Substance: LEFLUNOMIDE
  5. VITAMIN C [Concomitant]
     Active Substance: ASCORBIC ACID
  6. WARFARIN [Concomitant]
     Active Substance: WARFARIN

REACTIONS (1)
  - Death [None]
